FAERS Safety Report 23914811 (Version 1)
Quarter: 2024Q2

REPORT INFORMATION
  Report Type: Spontaneous
  Country: NO (occurrence: None)
  Receive Date: 20240529
  Receipt Date: 20240529
  Transmission Date: 20240716
  Serious: Yes (Hospitalization)
  Sender: FDA-Public Use
  Company Number: NO-MLMSERVICE-20240516-PI066449-00218-1

PATIENT
  Age: 8 Decade
  Sex: Female

DRUGS (2)
  1. METHOTREXATE [Suspect]
     Active Substance: METHOTREXATE
     Indication: Polymyalgia rheumatica
     Dosage: FOUR X 2.5 MG METHOTREXATE TABLETS ONCE A WEEK AND ON THE SAME DAY
  2. METHOTREXATE [Suspect]
     Active Substance: METHOTREXATE
     Dosage: TAKING ONE 2.5 MG METHOTREXATE TABLET DAILY, INSTEAD OF THE MEDICATION SHOULD ONLY BE TAKEN ON ONE D

REACTIONS (7)
  - Inappropriate schedule of product administration [Unknown]
  - Myalgia [Unknown]
  - Dyspnoea [Unknown]
  - Rales [Unknown]
  - Hypoxia [Unknown]
  - Chest pain [Unknown]
  - Product use in unapproved indication [Unknown]
